FAERS Safety Report 7741329-9 (Version None)
Quarter: 2011Q3

REPORT INFORMATION
  Report Type: 
  Country: None (occurrence: None)
  Receive Date: 20110909
  Receipt Date: 20110321
  Transmission Date: 20111222
  Serious: No
  Sender: FDA-Public Use
  Company Number: US-BAYER-2011-025055

PATIENT
  Sex: Female

DRUGS (2)
  1. ANTIBIOTICS [Concomitant]
     Indication: FUNGAL INFECTION
  2. MIRENA [Suspect]
     Indication: PRODUCT USED FOR UNKNOWN INDICATION
     Dosage: UNK
     Dates: start: 20080101

REACTIONS (4)
  - FUNGAL INFECTION [None]
  - VAGINAL DISCHARGE [None]
  - MENSTRUATION IRREGULAR [None]
  - DYSMENORRHOEA [None]
